FAERS Safety Report 25320693 (Version 1)
Quarter: 2025Q2

REPORT INFORMATION
  Report Type: Spontaneous
  Country: BG (occurrence: BG)
  Receive Date: 20250515
  Receipt Date: 20250515
  Transmission Date: 20250717
  Serious: Yes (Other)
  Sender: GILEAD
  Company Number: BG-GILEAD-2025-0713144

PATIENT
  Age: 42 Year
  Sex: Female

DRUGS (1)
  1. TRODELVY [Suspect]
     Active Substance: SACITUZUMAB GOVITECAN-HZIY
     Indication: Triple negative breast cancer
     Route: 042
     Dates: start: 202404, end: 202411

REACTIONS (5)
  - Metastases to bone [Unknown]
  - Thrombocytopenia [Unknown]
  - Neutropenia [Unknown]
  - Metastases to liver [Unknown]
  - Anaemia [Unknown]

NARRATIVE: CASE EVENT DATE: 20240204
